FAERS Safety Report 10292403 (Version 3)
Quarter: 2014Q3

REPORT INFORMATION
  Report Type: Report from Study
  Country: US (occurrence: US)
  Receive Date: 20140710
  Receipt Date: 20140730
  Transmission Date: 20150326
  Serious: Yes (Death, Hospitalization)
  Sender: FDA-Public Use
  Company Number: US-ACTELION-A-US2014-93611

PATIENT
  Age: 43 Year
  Sex: Male

DRUGS (6)
  1. VELETRI [Suspect]
     Active Substance: EPOPROSTENOL
     Indication: PULMONARY ARTERIAL HYPERTENSION
     Dosage: 24 NG/KG, PER MIN
     Route: 042
     Dates: start: 20130621, end: 20140628
  2. COUMADIN [Concomitant]
     Active Substance: WARFARIN SODIUM
  3. TRACLEER [Concomitant]
     Active Substance: BOSENTAN\BOSENTAN MONOHYDRATE
     Indication: PULMONARY ARTERIAL HYPERTENSION
  4. ADCIRCA [Concomitant]
     Active Substance: TADALAFIL
  5. LETAIRIS [Concomitant]
     Active Substance: AMBRISENTAN
  6. RIOCIGUAT [Concomitant]
     Active Substance: RIOCIGUAT

REACTIONS (4)
  - Pulmonary arterial hypertension [Fatal]
  - Condition aggravated [Fatal]
  - Dyspnoea [Fatal]
  - Exercise tolerance decreased [Fatal]

NARRATIVE: CASE EVENT DATE: 20140628
